FAERS Safety Report 9715852 (Version 2)
Quarter: 2014Q1

REPORT INFORMATION
  Report Type: Spontaneous
  Country: US (occurrence: US)
  Receive Date: 20131127
  Receipt Date: 20140326
  Transmission Date: 20141002
  Serious: Yes (Hospitalization, Other)
  Sender: FDA-Public Use
  Company Number: US-BAYER-2013-143928

PATIENT
  Age: 28 Year
  Sex: Female
  Weight: 65 kg

DRUGS (2)
  1. YAZ [Suspect]
  2. PENICILLIN V POTASSIUM [Concomitant]
     Dosage: 500 MG, UNK

REACTIONS (2)
  - Cholecystectomy [None]
  - Cholelithiasis [None]
